FAERS Safety Report 15562446 (Version 6)
Quarter: 2022Q4

REPORT INFORMATION
  Report Type: Spontaneous
  Country: JP (occurrence: JP)
  Receive Date: 20181029
  Receipt Date: 20221230
  Transmission Date: 20230113
  Serious: Yes (Hospitalization)
  Sender: FDA-Public Use
  Company Number: JP-JNJFOC-20181032210

PATIENT
  Age: 73 Year
  Sex: Male
  Weight: 51.3 kg

DRUGS (4)
  1. ZYTIGA [Suspect]
     Active Substance: ABIRATERONE ACETATE
     Indication: Prostate cancer metastatic
     Route: 048
     Dates: start: 20180918, end: 20181019
  2. ERLEADA [Suspect]
     Active Substance: APALUTAMIDE
     Indication: Prostate cancer metastatic
     Dosage: DOSE UNKNOWN
     Route: 048
  3. DEGARELIX [Suspect]
     Active Substance: DEGARELIX
     Indication: Product used for unknown indication
     Route: 058
     Dates: start: 20180904
  4. PREDNISOLONE [Concomitant]
     Active Substance: PREDNISOLONE
     Indication: Prostate cancer metastatic
     Route: 048
     Dates: start: 20180918, end: 20181019

REACTIONS (5)
  - Hepatitis acute [Recovering/Resolving]
  - Disseminated intravascular coagulation [Unknown]
  - Drug-induced liver injury [Recovered/Resolved]
  - Otitis media [Unknown]
  - Trigeminal neuralgia [Unknown]

NARRATIVE: CASE EVENT DATE: 20180101
